FAERS Safety Report 21190979 (Version 1)
Quarter: 2022Q3

REPORT INFORMATION
  Report Type: Other
  Country: US (occurrence: None)
  Receive Date: 20220809
  Receipt Date: 20220809
  Transmission Date: 20221027
  Serious: Yes (Hospitalization)
  Sender: FDA-Public Use
  Company Number: US-ROCHE-3154472

PATIENT
  Sex: Female

DRUGS (1)
  1. XELODA [Suspect]
     Active Substance: CAPECITABINE
     Indication: Colorectal cancer metastatic
     Dosage: TAKE 2 TABLET(S) BY MOUTH TWICE A DAY FOR 14 DAYS ON, THEN 7 DAYS OFF
     Route: 048

REACTIONS (4)
  - Syncope [Unknown]
  - Fall [Unknown]
  - Hypotension [Unknown]
  - Head injury [Unknown]
